FAERS Safety Report 13876617 (Version 2)
Quarter: 2017Q3

REPORT INFORMATION
  Report Type: Report from Study
  Country: CZ (occurrence: CZ)
  Receive Date: 20170817
  Receipt Date: 20170824
  Transmission Date: 20171127
  Serious: Yes (Hospitalization, Other)
  Sender: FDA-Public Use
  Company Number: CZ-BAYER-2017-154423

PATIENT
  Age: 16 Year
  Sex: Female
  Weight: 48 kg

DRUGS (1)
  1. JAYDESS [Suspect]
     Active Substance: LEVONORGESTREL
     Indication: CONTRACEPTION
     Dosage: 14 MCG/24HR, CONT
     Route: 015
     Dates: start: 20161031, end: 20170313

REACTIONS (7)
  - Pyrexia [Recovered/Resolved]
  - Pelvic pain [Recovered/Resolved]
  - Salpingitis [Recovered/Resolved]
  - Genital haemorrhage [None]
  - Peritoneal adhesions [Recovered/Resolved]
  - Perineal pain [Recovered/Resolved]
  - Abdominal pain lower [Recovered/Resolved]

NARRATIVE: CASE EVENT DATE: 20170313
